FAERS Safety Report 17883537 (Version 1)
Quarter: 2020Q2

REPORT INFORMATION
  Report Type: Spontaneous
  Country: NL (occurrence: NL)
  Receive Date: 20200611
  Receipt Date: 20200611
  Transmission Date: 20200714
  Serious: Yes (Life-Threatening)
  Sender: FDA-Public Use
  Company Number: NL-TEVA-2020-NL-1246201

PATIENT
  Sex: Male
  Weight: 76 kg

DRUGS (4)
  1. PREGABALINE [Concomitant]
     Active Substance: PREGABALIN
     Dosage: 75 MG, THERAPY START DATE: ASKED BUT UNKNOWN, THERAPY END DATE: ASKED BUT UNKNOWN
  2. ZOLPIDEM [Suspect]
     Active Substance: ZOLPIDEM TARTRATE
     Indication: INSOMNIA
     Dosage: 4 TABLETS ONCE
     Dates: start: 20151027, end: 20200525
  3. ALLOPURINOL. [Concomitant]
     Active Substance: ALLOPURINOL
     Dosage: 300 MG, THERAPY START DATE: ASKED BUT UNKNOWN, THERAPY END DATE: ASKED BUT UNKNOWN
  4. ENALAPRIL [Concomitant]
     Active Substance: ENALAPRIL
     Dosage: 20 MG, THERAPY START DATE: ASKED BUT UNKNOWN, THERAPY END DATE: ASKED BUT UNKNOWN

REACTIONS (3)
  - Suicidal ideation [Recovered/Resolved]
  - Overdose [Recovered/Resolved]
  - Amnesia [Recovered/Resolved]
